FAERS Safety Report 13043098 (Version 1)
Quarter: 2016Q4

REPORT INFORMATION
  Report Type: Spontaneous
  Country: US (occurrence: US)
  Receive Date: 20161219
  Receipt Date: 20161219
  Transmission Date: 20170207
  Serious: Yes (Hospitalization)
  Sender: FDA-Public Use
  Company Number: US-BEH-2016076100

PATIENT
  Age: 68 Year
  Sex: Female
  Weight: 112.93 kg

DRUGS (19)
  1. MACROBID [Concomitant]
     Active Substance: NITROFURANTOIN\NITROFURANTOIN MONOHYDRATE
  2. UMECLIDINIUM [Concomitant]
     Active Substance: UMECLIDINIUM BROMIDE
  3. GABAPENTIN. [Concomitant]
     Active Substance: GABAPENTIN
  4. IBUPROFEN. [Concomitant]
     Active Substance: IBUPROFEN
  5. ZEMAIRA [Suspect]
     Active Substance: .ALPHA.1-PROTEINASE INHIBITOR HUMAN
     Indication: ALPHA-1 ANTI-TRYPSIN DEFICIENCY
     Dosage: 60 MG/KG, UNK
     Route: 042
     Dates: start: 20151203
  6. PREDNISONE. [Concomitant]
     Active Substance: PREDNISONE
  7. LOSARTAN. [Concomitant]
     Active Substance: LOSARTAN
  8. DIPHENHYDRAMINE. [Concomitant]
     Active Substance: DIPHENHYDRAMINE
  9. LIDOCAINE/PRILOCAINE [Concomitant]
     Active Substance: LIDOCAINE\PRILOCAINE
  10. MACITENTAN [Concomitant]
     Active Substance: MACITENTAN
  11. HEPARIN [Concomitant]
     Active Substance: HEPARIN SODIUM
  12. EPIPEN [Concomitant]
     Active Substance: EPINEPHRINE
  13. SYNTHROID [Concomitant]
     Active Substance: LEVOTHYROXINE SODIUM
  14. RAMIPRIL. [Concomitant]
     Active Substance: RAMIPRIL
  15. OXYGEN. [Concomitant]
     Active Substance: OXYGEN
  16. RIOCIGUAT [Concomitant]
     Active Substance: RIOCIGUAT
  17. ZEMAIRA [Suspect]
     Active Substance: .ALPHA.1-PROTEINASE INHIBITOR HUMAN
     Dosage: 60 MG/KG, UNK
     Route: 042
  18. ATENOLOL. [Concomitant]
     Active Substance: ATENOLOL
  19. SODIUM CHLORIDE. [Concomitant]
     Active Substance: SODIUM CHLORIDE

REACTIONS (2)
  - Cardiac operation [Unknown]
  - Headache [Unknown]

NARRATIVE: CASE EVENT DATE: 201611
